FAERS Safety Report 5072911-8 (Version None)
Quarter: 2006Q3

REPORT INFORMATION
  Report Type: 
  Country: None (occurrence: None)
  Receive Date: 20060802
  Receipt Date: 20060712
  Transmission Date: 20061208
  Serious: Yes (Disabling, Other)
  Sender: FDA-Public Use
  Company Number: DE200607002039

PATIENT
  Age: 48 Year
  Sex: Female
  Weight: 69 kg

DRUGS (1)
  1. YENTREVE [Suspect]
     Indication: STRESS URINARY INCONTINENCE
     Dosage: 40 MG, DAILY (1/D), ORAL
     Route: 048
     Dates: start: 20050901

REACTIONS (2)
  - HIP DYSPLASIA [None]
  - OSTEOARTHRITIS [None]
